FAERS Safety Report 7642124-1 (Version None)
Quarter: 2011Q3

REPORT INFORMATION
  Report Type: 
  Country: None (occurrence: None)
  Receive Date: 20110728
  Receipt Date: 20110721
  Transmission Date: 20111222
  Serious: Yes (Death, Hospitalization)
  Sender: FDA-Public Use
  Company Number: NL-PFIZER INC-2011166937

PATIENT
  Age: 26 Year
  Sex: Female

DRUGS (4)
  1. CYCLOSPORINE [Suspect]
     Dosage: 5 MG, 2X/DAY
  2. COLISTIN [Suspect]
     Route: 048
  3. TOBRAMYCIN [Suspect]
     Route: 048
  4. METHYLPREDNISOLONE ACETATE [Suspect]

REACTIONS (2)
  - PANCYTOPENIA [None]
  - DRUG INEFFECTIVE [None]
